FAERS Safety Report 19357642 (Version 1)
Quarter: 2021Q2

REPORT INFORMATION
  Report Type: Spontaneous
  Country: US (occurrence: US)
  Receive Date: 20210602
  Receipt Date: 20210602
  Transmission Date: 20210717
  Serious: Yes (Death, Life-Threatening, Hospitalization, Other)
  Sender: FDA-Public Use
  Company Number: US-CIPLA LTD.-2021US03762

PATIENT

DRUGS (1)
  1. CYCLOPHOSPHAMIDE. [Suspect]
     Active Substance: CYCLOPHOSPHAMIDE
     Indication: PRODUCT USED FOR UNKNOWN INDICATION
     Dosage: UNK, SEVERAL ROUNDS
     Route: 065

REACTIONS (3)
  - Pulseless electrical activity [Fatal]
  - Cardiac tamponade [Unknown]
  - Myocardial haemorrhage [Unknown]
